FAERS Safety Report 10135984 (Version 1)
Quarter: 2014Q2

REPORT INFORMATION
  Report Type: Spontaneous
  Country: CA (occurrence: CA)
  Receive Date: 20140429
  Receipt Date: 20140429
  Transmission Date: 20141212
  Serious: Yes (Other)
  Sender: FDA-Public Use
  Company Number: CA-BEH-2014042056

PATIENT
  Age: 60 Year
  Sex: Female

DRUGS (9)
  1. PRIVIGEN [Suspect]
     Indication: HYPOGAMMAGLOBULINAEMIA
     Dosage: AS NEEDED SINCE JUL-2011
     Route: 042
  2. RAMIPRIL [Concomitant]
  3. FOSAMAX [Concomitant]
  4. SYNTHROID [Concomitant]
  5. VITAMINS [Concomitant]
  6. MAGNESIUM [Concomitant]
  7. VITAMIN D [Concomitant]
  8. FISH OIL [Concomitant]
  9. KELP [Concomitant]

REACTIONS (5)
  - Wheezing [Recovered/Resolved]
  - Blood pressure increased [Recovered/Resolved]
  - Flushing [Recovered/Resolved]
  - Dyspnoea [Recovered/Resolved]
  - Chest discomfort [Recovered/Resolved]
